FAERS Safety Report 4354902-5 (Version None)
Quarter: 2004Q2

REPORT INFORMATION
  Report Type: 
  Country: None (occurrence: None)
  Receive Date: 20040507
  Receipt Date: 20031009
  Transmission Date: 20050107
  Serious: Yes (Hospitalization, Other)
  Sender: FDA-Public Use
  Company Number: US-MERCK-0310USA01303

PATIENT
  Age: 55 Year
  Sex: Female
  Weight: 91 kg

DRUGS (11)
  1. ASPIRIN [Concomitant]
     Route: 065
     Dates: start: 19950101
  2. SOMA [Concomitant]
     Route: 065
  3. CARDIZEM [Concomitant]
     Route: 065
  4. LASIX [Concomitant]
     Route: 065
     Dates: start: 19950101
  5. ALEVE [Concomitant]
     Route: 065
  6. NITROGLYCERIN [Concomitant]
     Route: 065
  7. PAXIL [Concomitant]
     Route: 065
     Dates: start: 19950101, end: 20020101
  8. K-DUR 10 [Concomitant]
     Route: 065
  9. ACCUPRIL [Concomitant]
     Route: 065
  10. VIOXX [Suspect]
     Indication: ARTHRITIS
     Route: 048
     Dates: start: 20010101, end: 20011227
  11. VIOXX [Suspect]
     Indication: PAIN
     Route: 048
     Dates: start: 20010101, end: 20011227

REACTIONS (11)
  - ANAEMIA [None]
  - CARDIAC VALVE DISEASE [None]
  - CORONARY ARTERY OCCLUSION [None]
  - DYSPHAGIA [None]
  - EMOTIONAL DISTRESS [None]
  - GASTROOESOPHAGEAL REFLUX DISEASE [None]
  - HAEMATOMA [None]
  - HYPERCHOLESTEROLAEMIA [None]
  - HYPERTENSION [None]
  - MYOCARDIAL INFARCTION [None]
  - PAIN [None]
